FAERS Safety Report 7606309-2 (Version None)
Quarter: 2011Q3

REPORT INFORMATION
  Report Type: 
  Country: None (occurrence: None)
  Receive Date: 20110713
  Receipt Date: 20110630
  Transmission Date: 20111222
  Serious: Yes (Hospitalization, Other)
  Sender: FDA-Public Use
  Company Number: US-BAYER-201038382NA

PATIENT
  Age: 28 Year
  Sex: Female
  Weight: 58.957 kg

DRUGS (5)
  1. ZITHROMAX [Concomitant]
     Indication: LARYNGITIS
     Dosage: UNK
     Dates: start: 20060212
  2. IBUPROFEN [Concomitant]
  3. YASMIN [Suspect]
     Indication: METRORRHAGIA
     Dosage: UNK
     Route: 048
     Dates: start: 20041101, end: 20050201
  4. CLARINEX [Concomitant]
     Indication: COUGH
     Dosage: UNK
     Dates: start: 20060208
  5. IBUPROFEN (ADVIL) [Concomitant]
     Dosage: UNK
     Dates: start: 19900101

REACTIONS (8)
  - PANIC ATTACK [None]
  - OEDEMA PERIPHERAL [None]
  - SKIN DISCOLOURATION [None]
  - DYSPHONIA [None]
  - PAIN [None]
  - DEEP VEIN THROMBOSIS [None]
  - DYSPNOEA [None]
  - PAIN IN EXTREMITY [None]
